FAERS Safety Report 25877391 (Version 2)
Quarter: 2025Q4

REPORT INFORMATION
  Report Type: Spontaneous
  Country: RS (occurrence: RS)
  Receive Date: 20251003
  Receipt Date: 20251028
  Transmission Date: 20260117
  Serious: Yes (Hospitalization)
  Sender: ROCHE
  Company Number: RS-ROCHE-10000396296

PATIENT
  Age: 35 Year
  Sex: Female

DRUGS (5)
  1. TOCILIZUMAB [Suspect]
     Active Substance: TOCILIZUMAB
     Indication: Rheumatoid arthritis
     Dosage: NOV/2009. INCLUDED INF. TCZ 8 MG/KG FOR 30 DAYS
     Route: 042
  2. METHOTREXATE [Concomitant]
     Active Substance: METHOTREXATE
     Dosage: 10MG/WEEK
  3. PRONISON [Concomitant]
     Active Substance: PREDNISONE
     Dosage: 10 MG/DAY
  4. FOLIC ACID [Concomitant]
     Active Substance: FOLIC ACID
  5. OMEPROL [OMEPRAZOLE] [Concomitant]

REACTIONS (7)
  - Groin pain [Unknown]
  - Pain [Unknown]
  - Joint swelling [Unknown]
  - Joint range of motion decreased [Unknown]
  - Aspartate aminotransferase increased [Recovered/Resolved]
  - Blood cholesterol increased [Recovered/Resolved]
  - Alanine aminotransferase increased [Recovered/Resolved]

NARRATIVE: CASE EVENT DATE: 20160101
